FAERS Safety Report 12067020 (Version 5)
Quarter: 2016Q2

REPORT INFORMATION
  Report Type: Spontaneous
  Country: FR (occurrence: FR)
  Receive Date: 20160211
  Receipt Date: 20160519
  Transmission Date: 20160815
  Serious: Yes (Hospitalization, Disabling, Other)
  Sender: FDA-Public Use
  Company Number: FR-ACORDA-ACO_121358_2016

PATIENT
  Age: 48 Year
  Sex: Female
  Weight: 75 kg

DRUGS (3)
  1. QUTENZA [Suspect]
     Active Substance: CAPSAICIN
     Dosage: 1 PATCH AND HALF, UNKNOWN FREQ.
     Route: 003
     Dates: start: 20160128, end: 20160128
  2. QUTENZA [Suspect]
     Active Substance: CAPSAICIN
     Indication: NEURALGIA
     Dosage: 1 PATCH AND HALF, UNKNOWN FREQ.
     Route: 061
     Dates: start: 20151216, end: 20151216
  3. EFFEXOR [Concomitant]
     Active Substance: VENLAFAXINE HYDROCHLORIDE
     Indication: PRODUCT USED FOR UNKNOWN INDICATION
     Dosage: 75 MG, UNK
     Route: 065

REACTIONS (8)
  - Application site pain [Recovered/Resolved]
  - Depression [Not Recovered/Not Resolved]
  - Burns third degree [Unknown]
  - Skin reaction [Recovering/Resolving]
  - Application site vesicles [Recovered/Resolved]
  - Intentional product misuse [Unknown]
  - Burns second degree [Recovered/Resolved]
  - Blister [Recovering/Resolving]

NARRATIVE: CASE EVENT DATE: 201601
